FAERS Safety Report 25167506 (Version 1)
Quarter: 2025Q2

REPORT INFORMATION
  Report Type: Spontaneous
  Country: US (occurrence: None)
  Receive Date: 20250405
  Receipt Date: 20250405
  Transmission Date: 20250717
  Serious: Yes (Death)
  Sender: FDA-CTU
  Company Number: None

PATIENT
  Age: 60 Year
  Sex: Female

DRUGS (12)
  1. NEORAL [Suspect]
     Active Substance: CYCLOSPORINE
     Indication: Organ transplant
     Dosage: 100 MG BID ORAL
     Route: 048
     Dates: start: 20190909, end: 20250404
  2. CREON [Suspect]
     Active Substance: PANCRELIPASE AMYLASE\PANCRELIPASE LIPASE\PANCRELIPASE PROTEASE
  3. WARFARIN [Concomitant]
     Active Substance: WARFARIN
  4. LOSARTAN [Concomitant]
     Active Substance: LOSARTAN
  5. LABETALOL [Concomitant]
     Active Substance: LABETALOL
  6. MIRTAZAPINE [Suspect]
     Active Substance: MIRTAZAPINE
  7. NOVOLOG [Concomitant]
     Active Substance: INSULIN ASPART
  8. PREDNISONE [Concomitant]
     Active Substance: PREDNISONE
  9. CAYSTON [Concomitant]
     Active Substance: AZTREONAM
  10. SODIUM CHLORIDE [Concomitant]
     Active Substance: SODIUM CHLORIDE
  11. LINZESS [Concomitant]
     Active Substance: LINACLOTIDE
  12. POSACONAZOLE [Suspect]
     Active Substance: POSACONAZOLE

REACTIONS (1)
  - Death [None]

NARRATIVE: CASE EVENT DATE: 20250404
